FAERS Safety Report 16110714 (Version 2)
Quarter: 2021Q4

REPORT INFORMATION
  Report Type: Spontaneous
  Country: ES (occurrence: ES)
  Receive Date: 20190325
  Receipt Date: 20211008
  Transmission Date: 20220303
  Serious: Yes (Other)
  Sender: FDA-Public Use
  Company Number: ES-AEMPS-465585

PATIENT
  Age: 66 Year
  Sex: Male

DRUGS (7)
  1. ESCITALOPRAM [Interacting]
     Active Substance: ESCITALOPRAM OXALATE
     Indication: Sciatica
     Dosage: 5 MILLIGRAM, DAILY (1/2-0-0)
     Route: 048
     Dates: start: 201901, end: 20190223
  2. GABAPENTIN [Interacting]
     Active Substance: GABAPENTIN
     Indication: Sciatica
     Dosage: 300 MILLIGRAM,AT EVERY 8 HOUR (1-1-1. 1ST WEEK 0-0-1, 2ND WEEK 0-1-1, 3RD WEE
     Route: 048
     Dates: start: 201901
  3. GABAPENTIN [Suspect]
     Active Substance: GABAPENTIN
     Indication: Sciatica
     Dosage: 300 MILLIGRAM, ONCE A DAY
     Route: 048
     Dates: start: 201901
  4. TRAMADOL HYDROCHLORIDE [Interacting]
     Active Substance: TRAMADOL HYDROCHLORIDE
     Indication: Sciatica
     Dosage: 75 MILLIGRAM, TWO TIMES A DAY (1-0-1. 1ST WEEK 0-0-1, 2ND WEEK 1-0-1 AN
     Route: 048
     Dates: start: 201901
  5. NEBIVOLOL [Concomitant]
     Active Substance: NEBIVOLOL
     Indication: Product used for unknown indication
     Dosage: UNK
     Route: 048
  6. ATORVASTATIN [Concomitant]
     Active Substance: ATORVASTATIN
     Indication: Product used for unknown indication
     Dosage: UNK
     Route: 048
  7. ASPIRIN [Concomitant]
     Active Substance: ASPIRIN
     Indication: Product used for unknown indication
     Dosage: UNK
     Route: 048

REACTIONS (1)
  - Urinary retention [Recovered/Resolved]

NARRATIVE: CASE EVENT DATE: 20190128
